FAERS Safety Report 12207377 (Version 3)
Quarter: 2016Q3

REPORT INFORMATION
  Report Type: Spontaneous
  Country: CA (occurrence: CA)
  Receive Date: 20160324
  Receipt Date: 20160712
  Transmission Date: 20161109
  Serious: Yes (Other)
  Sender: FDA-Public Use
  Company Number: CA-GLAXOSMITHKLINE-A1079903A

PATIENT
  Age: 19 Year
  Sex: Female
  Weight: 59 kg

DRUGS (4)
  1. BENLYSTA [Suspect]
     Active Substance: BELIMUMAB
     Dosage: 540 MG Q4 WEEKS
     Route: 042
  2. BENLYSTA [Suspect]
     Active Substance: BELIMUMAB
     Dosage: 560 MG,Q4W
     Route: 042
  3. BENLYSTA [Suspect]
     Active Substance: BELIMUMAB
     Dosage: 540 MG, UNK
     Route: 042
  4. BENLYSTA [Suspect]
     Active Substance: BELIMUMAB
     Indication: SYSTEMIC LUPUS ERYTHEMATOSUS
     Dosage: 10 MG/KG 0, 2, 4 WKS THEN EVERY 4 WEEKS
     Route: 042
     Dates: start: 20130822

REACTIONS (7)
  - Nasopharyngitis [Unknown]
  - Dysplastic naevus [Unknown]
  - Sinusitis [Unknown]
  - Skin mass [Unknown]
  - Overdose [Unknown]
  - Skin cancer [Recovered/Resolved]
  - Vaginal infection [Not Recovered/Not Resolved]

NARRATIVE: CASE EVENT DATE: 201506
